FAERS Safety Report 8728708 (Version 2)
Quarter: 2012Q4

REPORT INFORMATION
  Report Type: 
  Country: IE (occurrence: IE)
  Receive Date: 20120817
  Receipt Date: 20121009
  Transmission Date: 20130627
  Serious: Yes (Hospitalization)
  Sender: FDA-Public Use
  Company Number: PHFR2012IE004517

PATIENT
  Sex: Male

DRUGS (3)
  1. CLOZARIL [Suspect]
     Indication: SCHIZOPHRENIA
     Dosage: 400 mg, QD
     Route: 048
     Dates: start: 20010701
  2. CLOZARIL [Suspect]
     Dosage: 50 mg, QD for four days
     Route: 048
  3. CLOZARIL [Suspect]
     Dosage: 200 mg, QD
     Route: 048

REACTIONS (1)
  - Incorrect dose administered [Unknown]
